FAERS Safety Report 6139926-X (Version None)
Quarter: 2009Q1

REPORT INFORMATION
  Report Type: 
  Country: None (occurrence: None)
  Receive Date: 20090331
  Receipt Date: 20090331
  Transmission Date: 20090719
  Serious: No
  Sender: FDA-Public Use
  Company Number: None

PATIENT
  Age: 53 Year
  Sex: Male
  Weight: 77.11 kg

DRUGS (1)
  1. CEPHALEXIN [Suspect]
     Indication: SKIN INFECTION
     Dosage: 250 MG BID PO
     Route: 048
     Dates: start: 20090320, end: 20090326

REACTIONS (3)
  - DIARRHOEA [None]
  - NAUSEA [None]
  - VOMITING [None]
